FAERS Safety Report 6161028-7 (Version None)
Quarter: 2009Q2

REPORT INFORMATION
  Report Type: 
  Country: None (occurrence: None)
  Receive Date: 20090420
  Receipt Date: 20090408
  Transmission Date: 20091009
  Serious: Yes (Hospitalization)
  Sender: FDA-Public Use
  Company Number: US-PFIZER INC-2009186221

PATIENT
  Sex: Female
  Weight: 93.878 kg

DRUGS (2)
  1. SUNITINIB MALATE [Suspect]
     Indication: BREAST CANCER METASTATIC
     Dosage: UNK
     Route: 048
     Dates: start: 20081023, end: 20090318
  2. PACLITAXEL [Suspect]
     Indication: BREAST CANCER METASTATIC
     Dosage: UNK, WEEKLY 3 OF 4 WEEKS
     Route: 042
     Dates: start: 20081023, end: 20090312

REACTIONS (2)
  - DEHYDRATION [None]
  - FAILURE TO THRIVE [None]
